FAERS Safety Report 6524618-5 (Version None)
Quarter: 2010Q1

REPORT INFORMATION
  Report Type: 
  Country: None (occurrence: None)
  Receive Date: 20100104
  Receipt Date: 20091228
  Transmission Date: 20100710
  Serious: Yes (Other)
  Sender: FDA-Public Use
  Company Number: PHHY2009ZA59008

PATIENT
  Age: 14 Month
  Weight: 9 kg

DRUGS (1)
  1. VOLTAREN [Suspect]
     Indication: PYREXIA
     Dosage: 12.5 MG
     Dates: start: 20091225

REACTIONS (1)
  - LOSS OF CONSCIOUSNESS [None]
